FAERS Safety Report 10638957 (Version 2)
Quarter: 2015Q1

REPORT INFORMATION
  Report Type: Spontaneous
  Country: US (occurrence: US)
  Receive Date: 20141208
  Receipt Date: 20150109
  Transmission Date: 20150720
  Serious: Yes (Hospitalization, Other)
  Sender: FDA-Public Use
  Company Number: US-GLAXOSMITHKLINE-US2014GSK032704

PATIENT
  Age: 66 Year
  Sex: Female
  Weight: 64.17 kg

DRUGS (7)
  1. FASLODEX [Concomitant]
     Active Substance: FULVESTRANT
  2. ARIMIDEX [Concomitant]
     Active Substance: ANASTROZOLE
  3. CARVEDILOL PHOSPHATE. [Concomitant]
     Active Substance: CARVEDILOL PHOSPHATE
  4. FLONASE [Concomitant]
     Active Substance: FLUTICASONE PROPIONATE
  5. HYOSCYAMINE [Concomitant]
     Active Substance: HYOSCYAMINE
  6. COZAAR [Concomitant]
     Active Substance: LOSARTAN POTASSIUM
  7. LAPATINIB [Suspect]
     Active Substance: LAPATINIB
     Indication: BREAST CANCER METASTATIC
     Dosage: 1250 MG, QD
     Route: 048
     Dates: start: 20140723, end: 20141125

REACTIONS (5)
  - Gait disturbance [Not Recovered/Not Resolved]
  - Clavicle fracture [Unknown]
  - Urinary tract infection [Recovered/Resolved]
  - Vision blurred [Not Recovered/Not Resolved]
  - Disease progression [Not Recovered/Not Resolved]

NARRATIVE: CASE EVENT DATE: 20140923
